FAERS Safety Report 14714569 (Version 2)
Quarter: 2018Q2

REPORT INFORMATION
  Report Type: Spontaneous
  Country: JP (occurrence: JP)
  Receive Date: 20180404
  Receipt Date: 20180423
  Transmission Date: 20180711
  Serious: Yes (Disabling, Other)
  Sender: FDA-Public Use
  Company Number: JP-BAYER-2018-063189

PATIENT
  Age: 83 Year
  Sex: Male

DRUGS (6)
  1. BAYASPIRIN 100 MG [Suspect]
     Active Substance: ASPIRIN
     Indication: CEREBROVASCULAR ACCIDENT PROPHYLAXIS
     Dosage: 100 MG, QD
     Route: 048
     Dates: start: 20180128, end: 20180306
  2. CLOPIDOGREL [Suspect]
     Active Substance: CLOPIDOGREL BISULFATE
     Indication: CEREBRAL INFARCTION
     Dosage: UNK
     Dates: start: 20180307
  3. SLONNON [Suspect]
     Active Substance: ARGATROBAN
     Indication: CEREBRAL INFARCTION
     Dosage: UNK
     Route: 041
     Dates: start: 20180307
  4. BAYASPIRIN 100 MG [Suspect]
     Active Substance: ASPIRIN
     Indication: CEREBROVASCULAR ACCIDENT PROPHYLAXIS
     Dosage: DAILY DOSE 200 MG
     Route: 048
     Dates: start: 201803
  5. CILOSTAZOL. [Concomitant]
     Active Substance: CILOSTAZOL
     Indication: CEREBRAL INFARCTION
     Route: 048
  6. NICHOLIN [Suspect]
     Active Substance: CITICOLINE
     Indication: CEREBRAL INFARCTION
     Dosage: UNK
     Dates: start: 20180307

REACTIONS (3)
  - Monoplegia [None]
  - Asthenia [Recovered/Resolved with Sequelae]
  - Cerebral infarction [Recovered/Resolved with Sequelae]

NARRATIVE: CASE EVENT DATE: 20180309
